FAERS Safety Report 4833174-9 (Version None)
Quarter: 2005Q4

REPORT INFORMATION
  Report Type: 
  Country: None (occurrence: None)
  Receive Date: 20051121
  Receipt Date: 20051110
  Transmission Date: 20060501
  Serious: Yes (Other)
  Sender: FDA-Public Use
  Company Number: ES-AMGEN-UK157415

PATIENT
  Age: 56 Year
  Sex: Male

DRUGS (4)
  1. NEUPOGEN [Suspect]
     Indication: CHEMOTHERAPY
     Route: 065
  2. FLUDARABINE [Concomitant]
     Route: 065
  3. CYTARABINE [Concomitant]
     Route: 065
  4. IDARUBICIN HCL [Concomitant]
     Route: 065

REACTIONS (4)
  - ASCITES [None]
  - FLUID IMBALANCE [None]
  - HEPATOMEGALY [None]
  - OEDEMA PERIPHERAL [None]
